FAERS Safety Report 23655820 (Version 1)
Quarter: 2024Q1

REPORT INFORMATION
  Report Type: Spontaneous
  Country: IT (occurrence: IT)
  Receive Date: 20240321
  Receipt Date: 20240321
  Transmission Date: 20240410
  Serious: Yes (Hospitalization)
  Sender: FDA-Public Use
  Company Number: None

PATIENT
  Age: 47 Year
  Sex: Female

DRUGS (2)
  1. BIMZELX [Suspect]
     Active Substance: BIMEKIZUMAB-BKZX
     Indication: Pustular psoriasis
     Dosage: 320 MILLIGRAM, EV 4 WEEKS (2 VIALS OF 160MG PER WEEK AT WEEKS 0, 4, 8, 12)
     Route: 058
     Dates: start: 20230925, end: 20240122
  2. BIMZELX [Suspect]
     Active Substance: BIMEKIZUMAB-BKZX
     Indication: Off label use

REACTIONS (6)
  - Exophthalmos [Not Recovered/Not Resolved]
  - Otitis media [Not Recovered/Not Resolved]
  - Thrombosis [Not Recovered/Not Resolved]
  - Encephalitis [Not Recovered/Not Resolved]
  - Oral candidiasis [Recovered/Resolved]
  - Off label use [Unknown]

NARRATIVE: CASE EVENT DATE: 20230925
